FAERS Safety Report 4567898-8 (Version None)
Quarter: 2005Q1

REPORT INFORMATION
  Report Type: 
  Country: None (occurrence: None)
  Receive Date: 20050202
  Receipt Date: 20050126
  Transmission Date: 20050727
  Serious: Yes (Other)
  Sender: FDA-Public Use
  Company Number: PHNU2005DE00703

PATIENT
  Age: 33 Year
  Sex: Female

DRUGS (1)
  1. OXYTOCIN [Suspect]
     Indication: OXYTOCIN CHALLENGE TEST
     Dosage: UNK, ONCE/SINGLE
     Dates: start: 20040817, end: 20040817

REACTIONS (12)
  - ALOPECIA [None]
  - ANXIETY [None]
  - DRUG EXPOSURE DURING PREGNANCY [None]
  - HEADACHE [None]
  - HORMONE LEVEL ABNORMAL [None]
  - HYPERHIDROSIS [None]
  - INDUCED LABOUR [None]
  - MENSTRUATION IRREGULAR [None]
  - NORMAL NEWBORN [None]
  - PREMATURE BABY [None]
  - PREMATURE RUPTURE OF MEMBRANES [None]
  - PROGESTERONE DECREASED [None]
